FAERS Safety Report 9885063 (Version 5)
Quarter: 2014Q1

REPORT INFORMATION
  Report Type: Spontaneous
  Country: JP (occurrence: JP)
  Receive Date: 20140210
  Receipt Date: 20140313
  Transmission Date: 20141002
  Serious: Yes (Death)
  Sender: FDA-Public Use
  Company Number: JP-JNJFOC-20140202526

PATIENT
  Age: 36 Year
  Sex: Male
  Weight: 80 kg

DRUGS (4)
  1. XEPLION [Suspect]
     Indication: SCHIZOPHRENIA
     Route: 030
     Dates: start: 20140127
  2. OLANZAPINE [Concomitant]
     Indication: SCHIZOPHRENIA
     Dosage: OLANZAPINE WAS GIVEN ONLY ON 27-JAN-2014.
     Route: 065
     Dates: start: 20140127, end: 20140127
  3. ABILIFY [Concomitant]
     Indication: SCHIZOPHRENIA
     Route: 048
     Dates: start: 2011
  4. VEGETAMIN-A [Concomitant]
     Indication: SCHIZOPHRENIA
     Dosage: 1 DF  PER 1 DAY DURING BED TIME
     Route: 048
     Dates: start: 20140127

REACTIONS (2)
  - Acute myocardial infarction [Fatal]
  - Pyrexia [Recovering/Resolving]
